FAERS Safety Report 26092072 (Version 1)
Quarter: 2025Q4

REPORT INFORMATION
  Report Type: Spontaneous
  Country: EU (occurrence: EU)
  Receive Date: 20251126
  Receipt Date: 20251126
  Transmission Date: 20260117
  Serious: Yes (Other)
  Sender: ACCORD
  Company Number: EU-Accord-376852

PATIENT
  Age: 59 Year
  Sex: Female

DRUGS (7)
  1. ANASTROZOLE [Suspect]
     Active Substance: ANASTROZOLE
     Indication: Breast cancer
     Dates: start: 20191127, end: 20200201
  2. DOCETAXEL [Suspect]
     Active Substance: DOCETAXEL
     Indication: Breast cancer
     Dosage: FOUR CYCLES
     Dates: start: 20190513, end: 20190715
  3. EPIRUBICIN [Suspect]
     Active Substance: EPIRUBICIN
     Indication: Breast cancer
     Dosage: 4 CYCLES
     Dates: start: 20190806, end: 20191007
  4. LETROZOLE [Suspect]
     Active Substance: LETROZOLE
     Indication: Breast cancer
     Dates: start: 20200201
  5. CYCLOPHOSPHAMIDE [Suspect]
     Active Substance: CYCLOPHOSPHAMIDE
     Indication: Breast cancer
     Dosage: 4 CYCLES
     Dates: start: 20190513, end: 20190715
  6. TRASTUZUMAB [Suspect]
     Active Substance: TRASTUZUMAB
     Indication: Breast cancer
     Dosage: FOUR CYCLES
     Route: 058
     Dates: start: 20190806, end: 20191029
  7. TRASTUZUMAB [Suspect]
     Active Substance: TRASTUZUMAB
     Indication: Breast cancer
     Dosage: FOUR CYCLES
     Route: 058
     Dates: end: 20200728

REACTIONS (2)
  - Haematotoxicity [Unknown]
  - Drug intolerance [Unknown]
